FAERS Safety Report 9468665 (Version 2)
Quarter: 2013Q4

REPORT INFORMATION
  Report Type: Spontaneous
  Country: US (occurrence: US)
  Receive Date: 20130821
  Receipt Date: 20131023
  Transmission Date: 20140711
  Serious: Yes (Other)
  Sender: FDA-Public Use
  Company Number: US-TEVA-427479USA

PATIENT
  Age: 28 Year
  Sex: Female
  Weight: 81.27 kg

DRUGS (3)
  1. PARAGARD 380A [Suspect]
     Indication: CONTRACEPTION
     Route: 015
     Dates: start: 20110808, end: 20130819
  2. IBUPROFEN [Concomitant]
     Indication: HEADACHE
     Dosage: 2400 MILLIGRAM DAILY;
  3. SUMATRIPTAN [Concomitant]
     Indication: MIGRAINE
     Dosage: 50 MILLIGRAM DAILY; 1 AT ONSET OF MIGRAINE

REACTIONS (4)
  - Pregnancy with contraceptive device [Unknown]
  - Drug ineffective [Unknown]
  - Menstruation delayed [Not Recovered/Not Resolved]
  - Abdominal pain [Not Recovered/Not Resolved]
